FAERS Safety Report 23678990 (Version 1)
Quarter: 2024Q1

REPORT INFORMATION
  Report Type: Spontaneous
  Country: US (occurrence: None)
  Receive Date: 20240327
  Receipt Date: 20240327
  Transmission Date: 20240410
  Serious: No
  Sender: FDA-Public Use
  Company Number: None

PATIENT
  Age: 66 Year
  Sex: Female
  Weight: 84.8 kg

DRUGS (1)
  1. CARBOPLATIN [Suspect]
     Active Substance: CARBOPLATIN

REACTIONS (11)
  - Dyspnoea [None]
  - Lip swelling [None]
  - Swollen tongue [None]
  - Cyanosis [None]
  - Body temperature decreased [None]
  - Heart rate decreased [None]
  - Oxygen saturation decreased [None]
  - Blood pressure decreased [None]
  - Pallor [None]
  - Loss of consciousness [None]
  - Infusion related reaction [None]

NARRATIVE: CASE EVENT DATE: 20221103
